FAERS Safety Report 21582987 (Version 1)
Quarter: 2022Q4

REPORT INFORMATION
  Report Type: Spontaneous
  Country: US (occurrence: None)
  Receive Date: 20221110
  Receipt Date: 20221110
  Transmission Date: 20230113
  Serious: No
  Sender: FDA-Public Use
  Company Number: None

PATIENT
  Age: 61 Year
  Sex: Female
  Weight: 98.8 kg

DRUGS (2)
  1. CARBOPLATIN [Suspect]
     Active Substance: CARBOPLATIN
     Dates: end: 20221031
  2. TAXOL [Suspect]
     Active Substance: PACLITAXEL
     Dates: end: 20221031

REACTIONS (7)
  - Blindness [None]
  - Angle closure glaucoma [None]
  - Angle closure glaucoma [None]
  - Cataract [None]
  - Eye pain [None]
  - Ocular hyperaemia [None]
  - Loss of personal independence in daily activities [None]

NARRATIVE: CASE EVENT DATE: 20221103
